FAERS Safety Report 25056555 (Version 1)
Quarter: 2025Q1

REPORT INFORMATION
  Report Type: Spontaneous
  Country: US (occurrence: US)
  Receive Date: 20250310
  Receipt Date: 20250310
  Transmission Date: 20250408
  Serious: No
  Sender: BAUSCH AND LOMB
  Company Number: US-BAUSCHBL-2025BNL003519

PATIENT
  Age: 76 Year
  Sex: Male

DRUGS (1)
  1. ERYTHROMYCIN [Suspect]
     Active Substance: ERYTHROMYCIN
     Indication: Dry eye
     Dosage: HALF AN INCH OF OINTMENT INTO BOTH EYES ONCE DAILY AT NIGHT BEFORE BEDTIME
     Route: 047
     Dates: start: 20250222

REACTIONS (5)
  - Pain [Unknown]
  - Burning sensation [Unknown]
  - Vision blurred [Not Recovered/Not Resolved]
  - Product use complaint [Unknown]
  - Wrong technique in product usage process [Unknown]

NARRATIVE: CASE EVENT DATE: 20250201
